FAERS Safety Report 11997693 (Version 1)
Quarter: 2016Q1

REPORT INFORMATION
  Report Type: Spontaneous
  Country: DE (occurrence: DE)
  Receive Date: 20160203
  Receipt Date: 20160203
  Transmission Date: 20160526
  Serious: Yes (Hospitalization)
  Sender: FDA-Public Use
  Company Number: GXKR2016DE000679

PATIENT
  Sex: Male
  Weight: 80 kg

DRUGS (2)
  1. METOPROLOLSUCCINAT 1A PHARMA [Suspect]
     Active Substance: METOPROLOL SUCCINATE
     Indication: HYPERTENSION
     Dosage: 95 MG, QD
     Route: 048
     Dates: start: 20151015, end: 20160106
  2. TOLURA [Concomitant]
     Indication: HYPERTENSION
     Dosage: 1 DF, QD
     Route: 048
     Dates: start: 20151015, end: 20160106

REACTIONS (3)
  - Anal pruritus [Recovering/Resolving]
  - Constipation [Recovering/Resolving]
  - Ileus [Recovering/Resolving]

NARRATIVE: CASE EVENT DATE: 20151130
